FAERS Safety Report 6362333-1 (Version None)
Quarter: 2009Q3

REPORT INFORMATION
  Report Type: 
  Country: None (occurrence: None)
  Receive Date: 20090918
  Receipt Date: 20090604
  Transmission Date: 20100115
  Serious: No
  Sender: FDA-Public Use
  Company Number: US-ABBOTT-09P-163-0569675-00

PATIENT
  Sex: Female
  Weight: 58.112 kg

DRUGS (2)
  1. HUMIRA [Suspect]
     Indication: CROHN'S DISEASE
     Dates: start: 20090420, end: 20090420
  2. HUMIRA [Suspect]

REACTIONS (8)
  - AXILLARY PAIN [None]
  - COUGH [None]
  - HEADACHE [None]
  - INJECTION SITE PAIN [None]
  - MIGRAINE [None]
  - NAUSEA [None]
  - PAIN [None]
  - VOMITING [None]
